FAERS Safety Report 8805007 (Version 3)
Quarter: 2013Q1

REPORT INFORMATION
  Report Type: Spontaneous
  Country: CN (occurrence: CN)
  Receive Date: 20120924
  Receipt Date: 20130322
  Transmission Date: 20140127
  Serious: Yes (Other)
  Sender: FDA-Public Use
  Company Number: CN-ROCHE-1133392

PATIENT
  Sex: 0

DRUGS (2)
  1. MABTHERA [Suspect]
     Indication: HAEMOLYTIC ANAEMIA
     Route: 065
     Dates: start: 201201
  2. MABTHERA [Suspect]
     Indication: OFF LABEL USE
     Route: 065
     Dates: start: 201208

REACTIONS (3)
  - Lung infection [Recovering/Resolving]
  - Rash [Recovering/Resolving]
  - Loss of consciousness [Recovering/Resolving]
